FAERS Safety Report 5426048-6 (Version None)
Quarter: 2007Q3

REPORT INFORMATION
  Report Type: 
  Country: None (occurrence: None)
  Receive Date: 20070824
  Receipt Date: 20070824
  Transmission Date: 20080115
  Serious: Yes (Hospitalization)
  Sender: FDA-Public Use
  Company Number: None

PATIENT
  Sex: Female
  Weight: 58.514 kg

DRUGS (11)
  1. GEMCITABINE HCL [Suspect]
     Indication: MESOTHELIOMA
     Dosage: 1000MG/M2 EVERY OTHER WEEK IV
     Route: 042
     Dates: start: 20070702, end: 20070814
  2. OXALIPLATIN [Suspect]
     Indication: MESOTHELIOMA
     Dosage: 100MG/M2 EVERY OTHER WEEK IV
     Route: 042
     Dates: start: 20070702, end: 20070814
  3. TOPROL-XL [Concomitant]
  4. LIPITOR [Concomitant]
  5. ALTACE [Concomitant]
  6. ESTRADIOL [Concomitant]
  7. IMDUR [Concomitant]
  8. ZETIA [Concomitant]
  9. PRILOSEC [Concomitant]
  10. PLAVIX [Concomitant]
  11. AMBIEN CR [Concomitant]

REACTIONS (3)
  - DEHYDRATION [None]
  - NAUSEA [None]
  - VOMITING [None]
